FAERS Safety Report 15340445 (Version 1)
Quarter: 2018Q3

REPORT INFORMATION
  Report Type: Spontaneous
  Country: IT (occurrence: IT)
  Receive Date: 20180831
  Receipt Date: 20180831
  Transmission Date: 20181010
  Serious: Yes (Hospitalization, Other)
  Sender: FDA-Public Use
  Company Number: PHHY2017IT204695

PATIENT
  Age: 14 Year
  Sex: Female

DRUGS (1)
  1. AMOXICILLIN?CLAVULANIC ACID [Suspect]
     Active Substance: AMOXICILLIN\CLAVULANIC ACID
     Indication: PRODUCT USED FOR UNKNOWN INDICATION
     Route: 065

REACTIONS (5)
  - C-reactive protein increased [Unknown]
  - Rash pruritic [Unknown]
  - Hypersensitivity [Unknown]
  - Leukocytosis [Unknown]
  - Pyrexia [Unknown]

NARRATIVE: CASE EVENT DATE: 201410
